FAERS Safety Report 17873489 (Version 3)
Quarter: 2022Q1

REPORT INFORMATION
  Report Type: Report from Study
  Country: US (occurrence: None)
  Receive Date: 20200609
  Receipt Date: 20220128
  Transmission Date: 20220423
  Serious: Yes (Other)
  Sender: FDA-Public Use
  Company Number: US-MERCK HEALTHCARE KGAA-9167293

PATIENT
  Age: 54 Year
  Sex: Female
  Weight: 104 kg

DRUGS (2)
  1. REBIF [Suspect]
     Active Substance: INTERFERON BETA-1A
     Indication: Multiple sclerosis
     Route: 058
     Dates: start: 20031201
  2. WELLBUTRIN [Concomitant]
     Active Substance: BUPROPION HYDROCHLORIDE
     Indication: Depression

REACTIONS (8)
  - Multiple sclerosis [Recovered/Resolved]
  - Injection site bruising [Unknown]
  - Influenza like illness [Unknown]
  - Balance disorder [Unknown]
  - Injury [Unknown]
  - Contusion [Unknown]
  - Wrong technique in device usage process [Unknown]
  - Product dose omission issue [Recovered/Resolved]

NARRATIVE: CASE EVENT DATE: 20200501
